FAERS Safety Report 16088356 (Version 1)
Quarter: 2019Q2

REPORT INFORMATION
  Report Type: Spontaneous
  Country: US (occurrence: US)
  Receive Date: 20190319
  Receipt Date: 20190319
  Transmission Date: 20190711
  Serious: Yes (Hospitalization, Disabling)
  Sender: FDA-Public Use
  Company Number: None

PATIENT
  Age: 38 Year
  Sex: Female
  Weight: 58.5 kg

DRUGS (2)
  1. XARELTO [Concomitant]
     Active Substance: RIVAROXABAN
  2. DIAZEPAM. [Suspect]
     Active Substance: DIAZEPAM

REACTIONS (1)
  - Withdrawal syndrome [None]

NARRATIVE: CASE EVENT DATE: 20140209
